FAERS Safety Report 6348592-X (Version None)
Quarter: 2009Q3

REPORT INFORMATION
  Report Type: 
  Country: None (occurrence: None)
  Receive Date: 20090911
  Receipt Date: 20090827
  Transmission Date: 20100115
  Serious: Yes (Hospitalization)
  Sender: FDA-Public Use
  Company Number: CN-ROCHE-652966

PATIENT
  Age: 50 Year
  Sex: Female
  Weight: 47 kg

DRUGS (2)
  1. PEG-INTERFERON ALFA 2A (RO 25-8310) [Suspect]
     Indication: HEPATITIS C
     Dosage: STRENGTH WAS 180 UG
     Route: 058
     Dates: start: 20090324, end: 20090628
  2. PEG-INTERFERON ALFA 2A (RO 25-8310) [Suspect]
     Dosage: STRENGTH WAS 135 UG
     Route: 058
     Dates: start: 20090812

REACTIONS (6)
  - COMA [None]
  - CONVULSION [None]
  - DECREASED APPETITE [None]
  - ENCEPHALITIS VIRAL [None]
  - RASH [None]
  - SOMNAMBULISM [None]
